FAERS Safety Report 19211790 (Version 1)
Quarter: 2021Q2

REPORT INFORMATION
  Report Type: Spontaneous
  Country: US (occurrence: US)
  Receive Date: 20210504
  Receipt Date: 20210504
  Transmission Date: 20210717
  Serious: Yes (Disabling, Other)
  Sender: FDA-Public Use
  Company Number: None

PATIENT
  Age: 60 Year
  Sex: Female
  Weight: 83.25 kg

DRUGS (4)
  1. VITAMINS [Concomitant]
     Active Substance: VITAMINS
  2. CLOBETASOL CREAM [Concomitant]
     Active Substance: CLOBETASOL
  3. OTEZLA [Suspect]
     Active Substance: APREMILAST
     Indication: PSORIASIS
     Route: 048
     Dates: start: 20200909, end: 20200925
  4. VITAMIN C [Concomitant]
     Active Substance: ASCORBIC ACID

REACTIONS (4)
  - Diarrhoea [None]
  - Dyspnoea [None]
  - Feeling abnormal [None]
  - Vomiting [None]

NARRATIVE: CASE EVENT DATE: 20200909
